FAERS Safety Report 7400083-0 (Version None)
Quarter: 2011Q2

REPORT INFORMATION
  Report Type: 
  Country: None (occurrence: None)
  Receive Date: 20110407
  Receipt Date: 20100108
  Transmission Date: 20111010
  Serious: Yes (Other)
  Sender: FDA-Public Use
  Company Number: PHHY2010DE91004

PATIENT
  Sex: Male

DRUGS (1)
  1. EXTAVIA [Suspect]
     Dosage: UNK
     Route: 058
     Dates: start: 20090918

REACTIONS (3)
  - VISUAL ACUITY REDUCED [None]
  - TEMPERATURE INTOLERANCE [None]
  - ERYTHEMA [None]
